FAERS Safety Report 7592287-1 (Version None)
Quarter: 2011Q3

REPORT INFORMATION
  Report Type: 
  Country: None (occurrence: None)
  Receive Date: 20110705
  Receipt Date: 20110705
  Transmission Date: 20111222
  Serious: Yes (Other)
  Sender: FDA-Public Use
  Company Number: None

PATIENT
  Age: 73 Year
  Sex: Female
  Weight: 117.9352 kg

DRUGS (1)
  1. BONIVA [Suspect]
     Indication: OSTEOPOROSIS
     Dosage: 150 MG 1 PER MONTH PO
     Route: 048
     Dates: start: 20070803, end: 20101010

REACTIONS (4)
  - ARTHRALGIA [None]
  - BONE PAIN [None]
  - IMPAIRED HEALING [None]
  - OSTEONECROSIS [None]
